FAERS Safety Report 8087159-2 (Version None)
Quarter: 2012Q1

REPORT INFORMATION
  Report Type: 
  Country: None (occurrence: None)
  Receive Date: 20120128
  Receipt Date: 20110512
  Transmission Date: 20120608
  Serious: No
  Sender: FDA-Public Use
  Company Number: US-ABBOTT-11P-163-0725627-00

PATIENT
  Age: 63 Year
  Sex: Female

DRUGS (7)
  1. HUMIRA [Suspect]
     Indication: RHEUMATOID ARTHRITIS
     Dates: start: 20110331
  2. TYLENOL PM [Concomitant]
     Indication: PRODUCT USED FOR UNKNOWN INDICATION
  3. METHOTREXATE [Concomitant]
     Indication: PRODUCT USED FOR UNKNOWN INDICATION
     Dosage: 6 PILLS EVERY WEEK
  4. MAXZIDE [Concomitant]
     Indication: BLOOD PRESSURE
     Dosage: DAILY
  5. DITROPAN XL [Concomitant]
     Indication: BLADDER DISORDER
     Dosage: DAILY
  6. DIOVAN [Concomitant]
     Indication: BLOOD PRESSURE
     Dosage: DAILY
  7. CHEWABLE CALCIUM [Concomitant]
     Indication: PRODUCT USED FOR UNKNOWN INDICATION

REACTIONS (1)
  - PAIN IN EXTREMITY [None]
